FAERS Safety Report 8316192-8 (Version None)
Quarter: 2012Q2

REPORT INFORMATION
  Report Type: 
  Country: None (occurrence: None)
  Receive Date: 20120427
  Receipt Date: 20120423
  Transmission Date: 20120825
  Serious: No
  Sender: FDA-Public Use
  Company Number: US-PFIZER INC-2011284864

PATIENT
  Sex: Female
  Weight: 68.027 kg

DRUGS (4)
  1. CELEBREX [Suspect]
     Indication: HYPOAESTHESIA
     Dosage: 200 MG, 1X/DAY
     Route: 048
     Dates: start: 20111001, end: 20120201
  2. ACETYLSALICYLIC ACID [Concomitant]
     Indication: CARDIOVASCULAR DISORDER
     Dosage: 50 MG, UNK
  3. CELEBREX [Suspect]
     Indication: ARTHRITIS
  4. LEVATOL [Concomitant]
     Dosage: UNK

REACTIONS (2)
  - DRUG INEFFECTIVE [None]
  - ARTHRITIS [None]
